FAERS Safety Report 17690013 (Version 6)
Quarter: 2021Q4

REPORT INFORMATION
  Report Type: Other
  Country: AU (occurrence: AU)
  Receive Date: 20200421
  Receipt Date: 20211103
  Transmission Date: 20220303
  Serious: Yes (Death, Hospitalization, Other)
  Sender: FDA-Public Use
  Company Number: AU-PAREXEL-2019AU007463

PATIENT
  Age: 90 Year
  Sex: Male

DRUGS (6)
  1. ELIGARD [Suspect]
     Active Substance: LEUPROLIDE ACETATE
     Indication: Prostate cancer
     Dosage: 22.5 MG, Q 3 MONTH
     Route: 058
     Dates: start: 20180424
  2. AVODART [Concomitant]
     Active Substance: DUTASTERIDE
     Indication: Product used for unknown indication
     Dosage: UNK
  3. BISOPROLOL [Concomitant]
     Active Substance: BISOPROLOL
     Indication: Product used for unknown indication
     Dosage: UNK
  4. LYRICA [Concomitant]
     Active Substance: PREGABALIN
     Indication: Product used for unknown indication
     Dosage: UNK
  5. PRADAXA [Concomitant]
     Active Substance: DABIGATRAN ETEXILATE MESYLATE
     Indication: Product used for unknown indication
     Dosage: UNK
  6. CHOLECALCIFEROL [Concomitant]
     Active Substance: CHOLECALCIFEROL
     Indication: Product used for unknown indication
     Dosage: UNK

REACTIONS (17)
  - Death [Fatal]
  - Bladder neoplasm [Unknown]
  - Hip fracture [Not Recovered/Not Resolved]
  - Upper limb fracture [Not Recovered/Not Resolved]
  - Rib fracture [Not Recovered/Not Resolved]
  - Coma [Unknown]
  - Fall [Not Recovered/Not Resolved]
  - Urosepsis [Recovered/Resolved]
  - Cerebrovascular accident [Not Recovered/Not Resolved]
  - Calculus bladder [Unknown]
  - Urine odour abnormal [Unknown]
  - Oedema peripheral [Unknown]
  - Neck pain [Unknown]
  - Back pain [Unknown]
  - Nocturia [Unknown]
  - Polyuria [Unknown]
  - Dysuria [Unknown]

NARRATIVE: CASE EVENT DATE: 20201201
